FAERS Safety Report 5950893-1 (Version None)
Quarter: 2008Q4

REPORT INFORMATION
  Report Type: 
  Country: None (occurrence: None)
  Receive Date: 20081112
  Receipt Date: 20081103
  Transmission Date: 20090506
  Serious: Yes (Other)
  Sender: FDA-Public Use
  Company Number: US-PFIZER INC-2008093144

PATIENT
  Sex: Male
  Weight: 95.3 kg

DRUGS (6)
  1. XANAX [Suspect]
     Indication: TREMOR
  2. ZITHROMAX [Interacting]
     Indication: PNEUMONIA
     Dosage: DAILY DOSE:500MG-TEXT:DAILY
  3. SYNTHROID [Interacting]
     Indication: THYROID DISORDER
  4. ASCORBIC ACID [Interacting]
  5. VITAMIN E [Interacting]
  6. VITAMIN B-12 [Concomitant]

REACTIONS (6)
  - DRUG INTERACTION [None]
  - FEELING COLD [None]
  - FEELING HOT [None]
  - PNEUMONIA [None]
  - SINUSITIS [None]
  - TREMOR [None]
